FAERS Safety Report 8305264-X (Version None)
Quarter: 2012Q2

REPORT INFORMATION
  Report Type: 
  Country: None (occurrence: None)
  Receive Date: 20120423
  Receipt Date: 20120420
  Transmission Date: 20120825
  Serious: Yes (Death)
  Sender: FDA-Public Use
  Company Number: DE-JNJFOC-20120408984

PATIENT
  Age: 4 Decade
  Sex: Male

DRUGS (3)
  1. PALIPERIDONE [Suspect]
     Indication: SCHIZOPHRENIA, PARANOID TYPE
     Route: 030
  2. PAROXETINE [Concomitant]
     Indication: SCHIZOPHRENIA, PARANOID TYPE
     Route: 065
  3. QUETIAPINE [Concomitant]
     Indication: SCHIZOPHRENIA, PARANOID TYPE
     Route: 065

REACTIONS (1)
  - ILEUS [None]
